FAERS Safety Report 10556572 (Version 2)
Quarter: 2014Q4

REPORT INFORMATION
  Report Type: Spontaneous
  Country: JP (occurrence: JP)
  Receive Date: 20141031
  Receipt Date: 20141031
  Transmission Date: 20150529
  Serious: Yes (Hospitalization)
  Sender: FDA-Public Use
  Company Number: JP-ROCHE-1467979

PATIENT
  Age: 62 Year
  Sex: Male
  Weight: 77 kg

DRUGS (5)
  1. HISHIPHAGEN-C [Concomitant]
     Indication: PRURITUS
     Route: 042
     Dates: start: 20140908
  2. MIRCERA [Suspect]
     Active Substance: PEGZEREPOETIN ALFA
     Indication: NEPHROGENIC ANAEMIA
     Route: 042
     Dates: start: 20140922
  3. FESIN (JAPAN) [Suspect]
     Active Substance: IRON SUCROSE
     Indication: NEPHROGENIC ANAEMIA
     Route: 042
     Dates: start: 20140922, end: 20140922
  4. GLUCOSE [Concomitant]
     Active Substance: DEXTROSE
     Route: 042
     Dates: start: 20140922, end: 20140922
  5. L CARTIN FF [Concomitant]
     Indication: NEPHROGENIC ANAEMIA
     Route: 042
     Dates: start: 20140528

REACTIONS (6)
  - Loss of consciousness [None]
  - Musculoskeletal stiffness [None]
  - Blood pressure decreased [Recovered/Resolved]
  - Pallor [None]
  - Shock [Recovered/Resolved]
  - Incontinence [Recovered/Resolved]

NARRATIVE: CASE EVENT DATE: 20140922
